FAERS Safety Report 7703817-0 (Version None)
Quarter: 2011Q3

REPORT INFORMATION
  Report Type: 
  Country: None (occurrence: None)
  Receive Date: 20110823
  Receipt Date: 20110812
  Transmission Date: 20111222
  Serious: Yes (Other)
  Sender: FDA-Public Use
  Company Number: US-ROCHE-778832

PATIENT
  Sex: Male
  Weight: 68 kg

DRUGS (4)
  1. ACCUTANE [Suspect]
     Route: 065
     Dates: start: 19970505, end: 19980204
  2. ACCUTANE [Suspect]
     Route: 065
     Dates: start: 19980211, end: 19980227
  3. ACCUTANE [Suspect]
     Route: 065
     Dates: start: 19980318, end: 19980429
  4. AMPICILLINE [Concomitant]
     Dates: start: 19980101, end: 19980107

REACTIONS (13)
  - GASTROINTESTINAL HAEMORRHAGE [None]
  - DEPRESSION [None]
  - CROHN'S DISEASE [None]
  - COLITIS ULCERATIVE [None]
  - DRY SKIN [None]
  - CHAPPED LIPS [None]
  - INFLAMMATORY BOWEL DISEASE [None]
  - HAEMORRHOIDS [None]
  - COLITIS ISCHAEMIC [None]
  - IRRITABLE BOWEL SYNDROME [None]
  - INTESTINAL HAEMORRHAGE [None]
  - EPISTAXIS [None]
  - BLOOD ALKALINE PHOSPHATASE INCREASED [None]
